FAERS Safety Report 5226393-3 (Version None)
Quarter: 2007Q1

REPORT INFORMATION
  Report Type: 
  Country: None (occurrence: None)
  Receive Date: 20070201
  Receipt Date: 20070119
  Transmission Date: 20070707
  Serious: Yes (Other)
  Sender: FDA-Public Use
  Company Number: DE-ELI_LILLY_AND_COMPANY-DE200701003883

PATIENT
  Age: 70 Year
  Sex: Female

DRUGS (8)
  1. FORTEO [Suspect]
     Indication: OSTEOPOROSIS
     Dosage: 20 NG, UNK
     Route: 058
     Dates: start: 20061212
  2. NEXIUM [Concomitant]
     Dosage: 40 MG, UNK
     Route: 048
  3. FUROSEMIDE [Concomitant]
     Dosage: 20 MG, UNK
     Route: 048
  4. KATADOLON [Concomitant]
     Dosage: UNK, 2/D
  5. VALORON [Concomitant]
     Dosage: UNK, 3/D
  6. ASPIRIN [Concomitant]
     Dosage: 100 MG, UNK
  7. EMBOLEX [Concomitant]
  8. ACTOS [Concomitant]
     Dosage: 120 MG, UNK

REACTIONS (1)
  - THROMBOCYTHAEMIA [None]
